FAERS Safety Report 5259158-7 (Version None)
Quarter: 2007Q1

REPORT INFORMATION
  Report Type: 
  Country: None (occurrence: None)
  Receive Date: 20070308
  Receipt Date: 20070227
  Transmission Date: 20070707
  Serious: Yes (Hospitalization)
  Sender: FDA-Public Use
  Company Number: FR-ELI_LILLY_AND_COMPANY-FR200610000598

PATIENT
  Age: 83 Year
  Sex: Female

DRUGS (9)
  1. FORTEO [Suspect]
     Indication: OSTEOPOROSIS
     Dosage: 20 UG, DAILY (1/D)
     Route: 058
     Dates: start: 20060517
  2. BRICANYL [Concomitant]
  3. OXEOL [Concomitant]
  4. HYDROCORTISONE [Concomitant]
  5. PLAVIX [Concomitant]
  6. IKOREL [Concomitant]
  7. ALDALIX [Concomitant]
  8. GAVISCON [Concomitant]
  9. NITROGLYCERIN [Concomitant]
     Indication: ANGINA PECTORIS

REACTIONS (1)
  - RESPIRATORY FAILURE [None]
